FAERS Safety Report 18382740 (Version 1)
Quarter: 2020Q4

REPORT INFORMATION
  Report Type: Spontaneous
  Country: US (occurrence: US)
  Receive Date: 20201013
  Receipt Date: 20201013
  Transmission Date: 20210114
  Serious: Yes (Life-Threatening)
  Sender: FDA-Public Use
  Company Number: None

PATIENT
  Age: 27 Year
  Sex: Male
  Weight: 113.4 kg

DRUGS (1)
  1. VANCOMYCIN (VANCOMYCIN 1GM/VIL INJ) [Suspect]
     Active Substance: VANCOMYCIN HYDROCHLORIDE
     Indication: BACTERIAL INFECTION
     Route: 042
     Dates: start: 20200621, end: 20200623

REACTIONS (2)
  - Thrombocytopenia [None]
  - Anti-platelet antibody positive [None]

NARRATIVE: CASE EVENT DATE: 20200623
